FAERS Safety Report 20040388 (Version 1)
Quarter: 2021Q4

REPORT INFORMATION
  Report Type: Spontaneous
  Country: US (occurrence: None)
  Receive Date: 20211105
  Receipt Date: 20211105
  Transmission Date: 20220303
  Serious: Yes (Disabling)
  Sender: FDA-Public Use
  Company Number: None

PATIENT
  Age: 42 Year
  Sex: Female
  Weight: 91.8 kg

DRUGS (4)
  1. JARDIANCE [Suspect]
     Active Substance: EMPAGLIFLOZIN
     Indication: Type 2 diabetes mellitus
     Dosage: OTHER QUANTITY : 1 TABLET(S);?
     Route: 048
     Dates: start: 20201016, end: 20210930
  2. METFORMIN HYDROCHLORIDE [Concomitant]
     Active Substance: METFORMIN HYDROCHLORIDE
  3. ESOMEPRAZOLE MAGNESIUM [Concomitant]
     Active Substance: ESOMEPRAZOLE MAGNESIUM
  4. HYDROCHLOROTHIAZIDE [Concomitant]
     Active Substance: HYDROCHLOROTHIAZIDE

REACTIONS (15)
  - Vulval disorder [None]
  - Pain [None]
  - Gait disturbance [None]
  - Crying [None]
  - Vulvovaginal mycotic infection [None]
  - Oedema genital [None]
  - Discharge [None]
  - Fungal infection [None]
  - Pruritus genital [None]
  - Skin exfoliation [None]
  - Rash erythematous [None]
  - Skin texture abnormal [None]
  - Acne cystic [None]
  - Condition aggravated [None]
  - Rash [None]

NARRATIVE: CASE EVENT DATE: 20210901
